FAERS Safety Report 12719491 (Version 1)
Quarter: 2016Q3

REPORT INFORMATION
  Report Type: Spontaneous
  Country: FR (occurrence: FR)
  Receive Date: 20160907
  Receipt Date: 20160907
  Transmission Date: 20161109
  Serious: Yes (Life-Threatening)
  Sender: FDA-Public Use
  Company Number: FR-ACCORD-043640

PATIENT
  Age: 69 Year
  Sex: Female

DRUGS (7)
  1. INNOHEP [Concomitant]
     Active Substance: TINZAPARIN SODIUM
     Dosage: 14 000 I.U. ANTI XA/0,7 ML
     Route: 058
  2. LEXOMIL [Concomitant]
     Active Substance: BROMAZEPAM
     Dosage: COMPRESSED, ONE TABLET AT THE EVENING
     Route: 048
  3. PACLITAXEL ACCORD [Suspect]
     Active Substance: PACLITAXEL
     Indication: LUNG ADENOCARCINOMA STAGE IV
     Dosage: ONE SINGLE INTAKE, STRENGTH: 6 MG/ML
     Route: 042
     Dates: start: 20160809
  4. EFFEXOR L.P. [Concomitant]
     Dosage: ONE CAPSULE IN THE MORNING
     Route: 048
  5. FOLIC ACID. [Concomitant]
     Active Substance: FOLIC ACID
  6. NOZINAN [Concomitant]
     Active Substance: LEVOMEPROMAZINE
     Dosage: DIVISIBLE COATED TABLET, HALF TABLET AT THE EVENING
     Route: 048
  7. CYANOCOBALAMIN. [Concomitant]
     Active Substance: CYANOCOBALAMIN

REACTIONS (1)
  - Acute pulmonary oedema [Recovered/Resolved]

NARRATIVE: CASE EVENT DATE: 20160809
